FAERS Safety Report 25031510 (Version 1)
Quarter: 2025Q1

REPORT INFORMATION
  Report Type: Report from Study
  Country: US (occurrence: US)
  Receive Date: 20250303
  Receipt Date: 20250303
  Transmission Date: 20250409
  Serious: Yes (Life-Threatening, Hospitalization)
  Sender: MYLAN
  Company Number: US-MYLANLABS-2025M1015841

PATIENT
  Age: 50 Year
  Sex: Male

DRUGS (1)
  1. TRANEXAMIC ACID [Suspect]
     Active Substance: TRANEXAMIC ACID
     Indication: Product used for unknown indication

REACTIONS (3)
  - Status epilepticus [Recovered/Resolved]
  - Hypotension [Unknown]
  - Wrong product administered [Unknown]
